FAERS Safety Report 12398592 (Version 2)
Quarter: 2016Q2

REPORT INFORMATION
  Report Type: Spontaneous
  Country: US (occurrence: US)
  Receive Date: 20160524
  Receipt Date: 20160607
  Transmission Date: 20160815
  Serious: Yes (Other)
  Sender: FDA-Public Use
  Company Number: US-GLAXOSMITHKLINE-US2016065649

PATIENT
  Age: 76 Year
  Sex: Male

DRUGS (3)
  1. GAS-X EXTRA STRENGTH [Suspect]
     Active Substance: DIMETHICONE
     Dosage: UNK
  2. GAS-X EXTRA STRENGTH [Suspect]
     Active Substance: DIMETHICONE
     Indication: FLATULENCE
     Dosage: UNK
  3. GAS-X EXTRA STRENGTH [Suspect]
     Active Substance: DIMETHICONE
     Dosage: UNK

REACTIONS (6)
  - Drug ineffective [Unknown]
  - Nephrolithiasis [Unknown]
  - Product label issue [Unknown]
  - Product quality issue [Unknown]
  - Renal colic [Unknown]
  - Drug administration error [Unknown]
